FAERS Safety Report 4371129-1 (Version None)
Quarter: 2004Q2

REPORT INFORMATION
  Report Type: 
  Country: None (occurrence: None)
  Receive Date: 20040604
  Receipt Date: 20020516
  Transmission Date: 20050107
  Serious: Yes (Hospitalization, Disabling)
  Sender: FDA-Public Use
  Company Number: US-MERCK-0205USA02064

PATIENT
  Age: 36 Year
  Sex: Male
  Weight: 70 kg

DRUGS (1)
  1. VIOXX [Suspect]
     Route: 048
     Dates: start: 20000401, end: 20000101

REACTIONS (65)
  - ABDOMINAL PAIN [None]
  - ACTIVITIES OF DAILY LIVING IMPAIRED [None]
  - ANXIETY [None]
  - APHAGIA [None]
  - ARTHRALGIA [None]
  - ASPERGILLOSIS [None]
  - BRADYPHRENIA [None]
  - BRONCHITIS [None]
  - CAROTID ARTERY STENOSIS [None]
  - CARPAL TUNNEL SYNDROME [None]
  - CEREBROVASCULAR ACCIDENT [None]
  - COMPLICATED MIGRAINE [None]
  - CONDITION AGGRAVATED [None]
  - CONVERSION DISORDER [None]
  - CONVULSION [None]
  - DEPRESSION [None]
  - DRUG DEPENDENCE [None]
  - DRUG INEFFECTIVE [None]
  - DYSPHAGIA [None]
  - DYSPHEMIA [None]
  - EMOTIONAL DISORDER [None]
  - GAIT DISTURBANCE [None]
  - HEMIANOPIA [None]
  - HYPERCHOLESTEROLAEMIA [None]
  - HYPERHIDROSIS [None]
  - HYPERTRIGLYCERIDAEMIA [None]
  - HYPERVENTILATION [None]
  - HYPOTENSION [None]
  - INJURY [None]
  - IRIS DISORDER [None]
  - IRRITABILITY [None]
  - LETHARGY [None]
  - LOSS OF CONSCIOUSNESS [None]
  - MAJOR DEPRESSION [None]
  - MELAS SYNDROME [None]
  - MEMORY IMPAIRMENT [None]
  - MIGRAINE [None]
  - MIGRAINE WITH AURA [None]
  - MUSCLE SPASMS [None]
  - MUSCLE STRAIN [None]
  - NAUSEA [None]
  - NEURITIS [None]
  - NIGHT SWEATS [None]
  - NYSTAGMUS [None]
  - OESOPHAGEAL SPASM [None]
  - PAIN [None]
  - PARAESTHESIA [None]
  - PHOTOPHOBIA [None]
  - PHOTOPSIA [None]
  - PIGMENTED NAEVUS [None]
  - ROAD TRAFFIC ACCIDENT [None]
  - SENSORY DISTURBANCE [None]
  - SKELETAL INJURY [None]
  - SKIN HYPOPIGMENTATION [None]
  - SKIN LACERATION [None]
  - SOMATISATION DISORDER [None]
  - SOMNOLENCE [None]
  - SPEECH DISORDER [None]
  - STARING [None]
  - SYNCOPE [None]
  - TREMOR [None]
  - TUNNEL VISION [None]
  - VASCULITIS [None]
  - VISUAL FIELD DEFECT [None]
  - VOMITING [None]
